FAERS Safety Report 18258981 (Version 2)
Quarter: 2021Q1

REPORT INFORMATION
  Report Type: Report from Study
  Country: US (occurrence: US)
  Receive Date: 20200911
  Receipt Date: 20210322
  Transmission Date: 20210419
  Serious: No
  Sender: FDA-Public Use
  Company Number: NVSC2020US248900

PATIENT
  Sex: Male

DRUGS (1)
  1. GLEEVEC [Suspect]
     Active Substance: IMATINIB MESYLATE
     Indication: PRODUCT USED FOR UNKNOWN INDICATION
     Dosage: UNK
     Route: 065

REACTIONS (8)
  - Rash [Unknown]
  - Pyrexia [Unknown]
  - Chromaturia [Unknown]
  - Liver disorder [Unknown]
  - Cardiac disorder [Unknown]
  - Muscle spasms [Unknown]
  - Nausea [Unknown]
  - Blood count abnormal [Unknown]
